FAERS Safety Report 23346024 (Version 2)
Quarter: 2024Q1

REPORT INFORMATION
  Report Type: Spontaneous
  Country: US (occurrence: US)
  Receive Date: 20231228
  Receipt Date: 20240111
  Transmission Date: 20240409
  Serious: Yes (Hospitalization, Other)
  Sender: FDA-Public Use
  Company Number: US-BRISTOL-MYERS SQUIBB COMPANY-2023-186334

PATIENT
  Age: 71 Year
  Sex: Female

DRUGS (2)
  1. POMALYST [Suspect]
     Active Substance: POMALIDOMIDE
     Indication: Plasma cell myeloma
     Dosage: DOSE: TAKE 1 WHOLE CAPSULE BY MOUTH
     Route: 048
     Dates: start: 20231220
  2. FENTANYL [Suspect]
     Active Substance: FENTANYL\FENTANYL CITRATE
     Indication: Product used for unknown indication
     Dosage: FENTYL PATCH

REACTIONS (4)
  - Pneumonia [Recovering/Resolving]
  - Hallucination [Unknown]
  - Blood magnesium decreased [Unknown]
  - Peripheral coldness [Unknown]
